FAERS Safety Report 9403390 (Version 1)
Quarter: 2013Q3

REPORT INFORMATION
  Report Type: Spontaneous
  Country: US (occurrence: US)
  Receive Date: 20130716
  Receipt Date: 20130716
  Transmission Date: 20140515
  Serious: Yes (Other)
  Sender: FDA-Public Use
  Company Number: US-B.I. PHARMACEUTICALS,INC./RIDGEFIELD-2013-BI-20317GD

PATIENT
  Age: 70 Year
  Sex: Male

DRUGS (5)
  1. PRAMIPEXOLE [Suspect]
     Indication: PARKINSON^S DISEASE
     Dosage: 3.375 MG
  2. PRAMIPEXOLE [Suspect]
     Dosage: 3.75 MG
  3. PRAMIPEXOLE [Suspect]
     Dosage: 3 MG
  4. CARBIDOPA LEVODOPA [Suspect]
     Indication: PARKINSON^S DISEASE
     Dosage: CARBIDOPA-LEVODOPA 175/650 MG
  5. CARBIDOPA LEVODOPA [Suspect]
     Dosage: CARBIDOPA-LEVODOPA 150/600  MG

REACTIONS (6)
  - Drug abuse [Recovered/Resolved]
  - Drug dependence [Recovered/Resolved]
  - Hypersexuality [Recovered/Resolved]
  - Anxiety [Recovered/Resolved]
  - Aggression [Recovered/Resolved]
  - Eating disorder [Recovered/Resolved]
